FAERS Safety Report 8442035-8 (Version None)
Quarter: 2012Q2

REPORT INFORMATION
  Report Type: 
  Country: None (occurrence: None)
  Receive Date: 20120615
  Receipt Date: 20120607
  Transmission Date: 20120825
  Serious: Yes (Hospitalization)
  Sender: FDA-Public Use
  Company Number: US-BAYER-2012-014656

PATIENT
  Age: 23 Year
  Sex: Female
  Weight: 90.703 kg

DRUGS (2)
  1. YAZ [Suspect]
     Indication: CONTRACEPTION
     Dosage: UNK
     Dates: start: 20081201, end: 20100101
  2. ORTHO TRI-CYCLEN LO [Concomitant]
     Dosage: UNK
     Dates: start: 20100101

REACTIONS (5)
  - ANXIETY [None]
  - PAIN [None]
  - CHOLECYSTITIS CHRONIC [None]
  - GALLBLADDER DISORDER [None]
  - ANHEDONIA [None]
